FAERS Safety Report 13731877 (Version 1)
Quarter: 2017Q3

REPORT INFORMATION
  Report Type: Spontaneous
  Country: US (occurrence: US)
  Receive Date: 20170707
  Receipt Date: 20170707
  Transmission Date: 20171127
  Serious: No
  Sender: FDA-Public Use
  Company Number: US-JNJFOC-20160402494

PATIENT
  Sex: Female

DRUGS (4)
  1. INVEGA TRINZA [Suspect]
     Active Substance: PALIPERIDONE PALMITATE
     Indication: PRODUCT USED FOR UNKNOWN INDICATION
     Route: 030
     Dates: start: 20160308, end: 20160308
  2. HALDOL [Suspect]
     Active Substance: HALOPERIDOL
     Indication: SUPPLEMENTATION THERAPY
     Route: 048
     Dates: start: 2016
  3. INVEGA TRINZA [Suspect]
     Active Substance: PALIPERIDONE PALMITATE
     Indication: PRODUCT USED FOR UNKNOWN INDICATION
     Route: 030
     Dates: start: 20151208, end: 20151208
  4. HALDOL [Suspect]
     Active Substance: HALOPERIDOL
     Indication: SUPPLEMENTATION THERAPY
     Route: 048
     Dates: start: 2016

REACTIONS (1)
  - Therapeutic response decreased [Unknown]

NARRATIVE: CASE EVENT DATE: 20160308
